FAERS Safety Report 7351814-X (Version None)
Quarter: 2011Q1

REPORT INFORMATION
  Report Type: 
  Country: None (occurrence: None)
  Receive Date: 20110315
  Receipt Date: 20100426
  Transmission Date: 20110831
  Serious: Yes (Hospitalization, Other)
  Sender: FDA-Public Use
  Company Number: US-BAYER-200938957NA

PATIENT
  Sex: Female
  Weight: 113.38 kg

DRUGS (13)
  1. YASMIN [Suspect]
     Dosage: UNK
     Route: 048
     Dates: start: 20020801, end: 20071001
  2. ACETAMINOPHEN [Concomitant]
     Dosage: 1000 MG, PRN
  3. CYMBALTA [Concomitant]
     Dosage: 30 MG, UNK
  4. ASCORBIC ACID [Concomitant]
     Dosage: UNK UNK, OW
  5. AMPHETAMINE AND DEXTROAMPHETAMINE SALTS [Concomitant]
     Dosage: UNK UNK, BID
  6. ZOLOFT [Concomitant]
     Dosage: 100 MG, UNK
  7. VALIUM [Concomitant]
     Dosage: 2 MG, BID
  8. KLONOPIN [Concomitant]
     Indication: ANXIETY
     Dosage: UNK
     Dates: start: 20040101, end: 20041001
  9. ADDERALL 10 [Concomitant]
  10. AMBIEN [Concomitant]
     Dosage: 10 MG, HS
  11. LEXAPRO [Concomitant]
     Indication: ANXIETY
     Dosage: UNK
     Dates: start: 20040101, end: 20041201
  12. GEODON [Concomitant]
     Dosage: 60 MG, HS
  13. YAZ [Suspect]
     Dosage: UNK
     Route: 048
     Dates: start: 20071001, end: 20081201

REACTIONS (5)
  - CHOLECYSTITIS CHRONIC [None]
  - ABDOMINAL PAIN UPPER [None]
  - CHOLELITHIASIS [None]
  - BILIARY COLIC [None]
  - CHOLECYSTITIS ACUTE [None]
